FAERS Safety Report 5606122-1 (Version None)
Quarter: 2008Q1

REPORT INFORMATION
  Report Type: 
  Country: None (occurrence: None)
  Receive Date: 20080123
  Receipt Date: 20080123
  Transmission Date: 20080703
  Serious: Yes (Life-Threatening, Hospitalization)
  Sender: FDA-Public Use
  Company Number: None

PATIENT
  Age: 86 Year
  Sex: Female
  Weight: 54.6584 kg

DRUGS (2)
  1. WARFARIN SODIUM [Suspect]
     Indication: ATRIAL FIBRILLATION
     Dosage: 3MG  MON,WED, FRI, SUN   PO
     Route: 048
  2. WARFARIN SODIUM [Suspect]
     Indication: ATRIAL FIBRILLATION
     Dosage: 4MG   TUE, THUR, SAT  PO
     Route: 048

REACTIONS (7)
  - ASTHENIA [None]
  - BACK PAIN [None]
  - MOVEMENT DISORDER [None]
  - POSTOPERATIVE THORACIC PROCEDURE COMPLICATION [None]
  - SPINAL CORD COMPRESSION [None]
  - SPINAL HAEMATOMA [None]
  - SUBARACHNOID HAEMORRHAGE [None]
